APPROVED DRUG PRODUCT: OXAPROZIN
Active Ingredient: OXAPROZIN
Strength: 600MG
Dosage Form/Route: TABLET;ORAL
Application: A075844 | Product #001
Applicant: SUN PHARMACEUTICAL INDUSTRIES INC
Approved: Jan 3, 2002 | RLD: No | RS: No | Type: DISCN